FAERS Safety Report 9735229 (Version 1)
Quarter: 2013Q4

REPORT INFORMATION
  Report Type: Spontaneous
  Country: ES (occurrence: None)
  Receive Date: 20131204
  Receipt Date: 20131204
  Transmission Date: 20140711
  Serious: Yes (Hospitalization)
  Sender: FDA-Public Use
  Company Number: AUR-APL-2013-09959

PATIENT
  Age: 47 Year
  Sex: Male

DRUGS (3)
  1. LAMOTRIGINE [Suspect]
     Indication: PARTIAL SEIZURES
     Dosage: 200 MG (100 MG, 1 IN 12 HR), UNKNOWN
  2. PHENYTOIN [Suspect]
     Indication: PARTIAL SEIZURES
     Dosage: 300 MG (100MG, 1 IN 8HR), UNKNOWN
  3. CLOBAZAM (CLOBAZAM) [Concomitant]

REACTIONS (16)
  - Nausea [None]
  - Vomiting [None]
  - Oliguria [None]
  - Abdominal pain [None]
  - Renal failure [None]
  - Hepatic function abnormal [None]
  - Aspartate aminotransferase increased [None]
  - Alanine aminotransferase increased [None]
  - Blood alkaline phosphatase increased [None]
  - Gamma-glutamyltransferase increased [None]
  - Renal tubular disorder [None]
  - Nephritis allergic [None]
  - Tubulointerstitial nephritis [None]
  - Drug reaction with eosinophilia and systemic symptoms [None]
  - Haemodialysis [None]
  - Anxiety [None]
